FAERS Safety Report 4850458-9 (Version None)
Quarter: 2005Q4

REPORT INFORMATION
  Report Type: 
  Country: None (occurrence: None)
  Receive Date: 20051207
  Receipt Date: 20051207
  Transmission Date: 20060501
  Serious: Yes (Disabling, Other)
  Sender: FDA-Public Use
  Company Number: None

PATIENT
  Age: 71 Year
  Sex: Female
  Weight: 78.9259 kg

DRUGS (7)
  1. LIPITOR [Suspect]
     Indication: BLOOD CHOLESTEROL INCREASED
     Dosage: 10 MG ONE DAILY
     Dates: start: 20050101, end: 20050816
  2. SYNTHROID [Concomitant]
  3. XALATAN [Concomitant]
  4. FLONASE [Concomitant]
  5. ASPIRIN [Concomitant]
  6. ALTACE [Concomitant]
  7. ATENOLOL [Concomitant]

REACTIONS (1)
  - MUSCULAR WEAKNESS [None]
